FAERS Safety Report 12352463 (Version 1)
Quarter: 2016Q2

REPORT INFORMATION
  Report Type: Spontaneous
  Country: US (occurrence: US)
  Receive Date: 20160510
  Receipt Date: 20160510
  Transmission Date: 20160815
  Serious: Yes (Other)
  Sender: FDA-Public Use
  Company Number: US-MYLANLABS-2016M1018243

PATIENT

DRUGS (2)
  1. CLONAZEPAM MYLAN [Suspect]
     Active Substance: CLONAZEPAM
     Indication: ANXIETY
     Dosage: 0.125 MG, QD
     Dates: start: 2016
  2. CLONAZEPAM MYLAN [Suspect]
     Active Substance: CLONAZEPAM
     Dosage: 0.75 MG, QD
     Dates: start: 201602, end: 2016

REACTIONS (3)
  - Feeling abnormal [Unknown]
  - Anxiety [Unknown]
  - Dyspnoea [Unknown]

NARRATIVE: CASE EVENT DATE: 2016
